FAERS Safety Report 25685520 (Version 1)
Quarter: 2025Q3

REPORT INFORMATION
  Report Type: Report from Study
  Country: CA (occurrence: CA)
  Receive Date: 20250815
  Receipt Date: 20250815
  Transmission Date: 20251020
  Serious: Yes (Death, Other)
  Sender: TAKEDA
  Company Number: CA-TAKEDA-2025TUS072555

PATIENT
  Age: 89 Year
  Sex: Male

DRUGS (28)
  1. VEDOLIZUMAB [Suspect]
     Active Substance: VEDOLIZUMAB
     Indication: Crohn^s disease
  2. AZATHIOPRINE [Concomitant]
     Active Substance: AZATHIOPRINE
  3. BUSPIRONE [Concomitant]
     Active Substance: BUSPIRONE HYDROCHLORIDE
  4. FLUOXETINE [Concomitant]
     Active Substance: FLUOXETINE HYDROCHLORIDE
  5. LORAZEPAM [Concomitant]
     Active Substance: LORAZEPAM
  6. PANTOPRAZOLE [Concomitant]
     Active Substance: PANTOPRAZOLE
  7. RISPERIDONE [Concomitant]
     Active Substance: RISPERIDONE
  8. RISPERIDONE [Concomitant]
     Active Substance: RISPERIDONE
  9. DOMPERIDONE [Concomitant]
     Active Substance: DOMPERIDONE
  10. POTASSIUM CHLORIDE [Concomitant]
     Active Substance: POTASSIUM CHLORIDE
  11. Senoside [Concomitant]
  12. FERROUS SULFATE [Concomitant]
     Active Substance: FERROUS SULFATE
  13. MESALAMINE [Concomitant]
     Active Substance: MESALAMINE
  14. ACETAMINOPHEN [Concomitant]
     Active Substance: ACETAMINOPHEN
     Indication: Arthritis
  15. VITAMIN D NOS [Concomitant]
     Active Substance: CHOLECALCIFEROL\ERGOCALCIFEROL
  16. AMITRIPTYLINE [Concomitant]
     Active Substance: AMITRIPTYLINE
  17. VITAMIN B12 [Concomitant]
     Active Substance: CYANOCOBALAMIN
  18. TRAZODONE [Concomitant]
     Active Substance: TRAZODONE HYDROCHLORIDE
  19. CHOLESTYRAMINE [Concomitant]
     Active Substance: CHOLESTYRAMINE
  20. SUCRALFATE [Concomitant]
     Active Substance: SUCRALFATE
  21. LACTULOSE [Concomitant]
     Active Substance: LACTULOSE
  22. MOMETASONE [Concomitant]
     Active Substance: MOMETASONE
  23. Dulcolax [Concomitant]
  24. ZOPICLONE [Concomitant]
     Active Substance: ZOPICLONE
  25. METAMUCIL [Concomitant]
     Active Substance: PLANTAGO SEED
  26. GLYCERIN [Concomitant]
     Active Substance: GLYCERIN
  27. VOLTAREN [Concomitant]
     Active Substance: DICLOFENAC SODIUM
     Route: 061
  28. PREDNISONE [Concomitant]
     Active Substance: PREDNISONE

REACTIONS (1)
  - Death [Fatal]

NARRATIVE: CASE EVENT DATE: 20250701
